FAERS Safety Report 19926122 (Version 1)
Quarter: 2021Q4

REPORT INFORMATION
  Report Type: Spontaneous
  Country: DO (occurrence: DO)
  Receive Date: 20211006
  Receipt Date: 20211006
  Transmission Date: 20220303
  Serious: Yes (Hospitalization, Other)
  Sender: FDA-Public Use
  Company Number: DO-009507513-2110DOM001069

PATIENT
  Age: 30 Year
  Sex: Male

DRUGS (1)
  1. INVANZ [Suspect]
     Active Substance: ERTAPENEM SODIUM
     Indication: Escherichia urinary tract infection
     Dosage: 1 GR DAILY
     Route: 030

REACTIONS (1)
  - Escherichia urinary tract infection [Recovered/Resolved]
